FAERS Safety Report 9192227 (Version 1)
Quarter: 2013Q1

REPORT INFORMATION
  Report Type: Spontaneous
  Country: GB (occurrence: None)
  Receive Date: 20130325
  Receipt Date: 20130325
  Transmission Date: 20140127
  Serious: Yes (Other)
  Sender: FDA-Public Use
  Company Number: USA/UKI/13/0028583

PATIENT
  Age: 41 Year
  Sex: Male

DRUGS (11)
  1. QUETIAPINE (QUETIAPINE) [Suspect]
     Indication: BIPOLAR DISORDER
  2. QUETIAPINE (QUETIAPINE) [Suspect]
  3. QUETIAPINE (QUETIAPINE) [Suspect]
  4. QUETIAPINE (QUETIAPINE) [Suspect]
  5. QUETIAPINE (QUETIAPINE) [Suspect]
  6. QUETIAPINE (QUETIAPINE) [Suspect]
  7. FLUOXETINE (FLUOXETINE) [Suspect]
  8. CITALOPRAM (CITALOPRAM) [Suspect]
  9. LAMOTRIGINE (LAMOTRIGINE) [Suspect]
  10. LITHIUM (LITHIUM) UNKNOWN [Suspect]
  11. VALPROATE SODIUM (VALPROATE SODIUM) [Suspect]

REACTIONS (8)
  - Convulsion [None]
  - Oral pain [None]
  - Incontinence [None]
  - Somnolence [None]
  - Mania [None]
  - Drug ineffective [None]
  - Suicide attempt [None]
  - Overdose [None]
